FAERS Safety Report 16325219 (Version 1)
Quarter: 2019Q2

REPORT INFORMATION
  Report Type: Spontaneous
  Country: US (occurrence: US)
  Receive Date: 20190411
  Receipt Date: 20190411
  Transmission Date: 20190711
  Serious: No
  Sender: FDA-Public Use
  Company Number: None

PATIENT
  Age: 39 Year
  Sex: Female

DRUGS (6)
  1. OCALIVA [Suspect]
     Active Substance: OBETICHOLIC ACID
     Route: 048
     Dates: start: 20190328
  2. FLUOXETINE [Concomitant]
     Active Substance: FLUOXETINE HYDROCHLORIDE
  3. GABAPENTIN. [Concomitant]
     Active Substance: GABAPENTIN
  4. URSODIOL. [Concomitant]
     Active Substance: URSODIOL
  5. BENDRYL [Concomitant]
  6. LEVOTHYROXIN [Concomitant]
     Active Substance: LEVOTHYROXINE

REACTIONS (4)
  - Feeling abnormal [None]
  - Disorientation [None]
  - Dizziness [None]
  - Malaise [None]

NARRATIVE: CASE EVENT DATE: 20190328
